FAERS Safety Report 25340345 (Version 3)
Quarter: 2025Q3

REPORT INFORMATION
  Report Type: Report from Study
  Country: US (occurrence: US)
  Receive Date: 20250521
  Receipt Date: 20250713
  Transmission Date: 20251021
  Serious: Yes (Hospitalization, Other)
  Sender: TAKEDA
  Company Number: US-TAKEDA-2025TUS047329

PATIENT
  Age: 45 Year
  Sex: Female

DRUGS (20)
  1. BRIGATINIB [Suspect]
     Active Substance: BRIGATINIB
     Indication: Lung neoplasm malignant
  2. BRIGATINIB [Suspect]
     Active Substance: BRIGATINIB
     Dosage: 180 MILLIGRAM, QD
  3. BRIGATINIB [Suspect]
     Active Substance: BRIGATINIB
     Dosage: 180 MILLIGRAM, QD
     Dates: start: 20250505
  4. ALBUTEROL [Concomitant]
     Active Substance: ALBUTEROL
  5. ELIQUIS [Concomitant]
     Active Substance: APIXABAN
  6. FERROUS SULFATE [Concomitant]
     Active Substance: FERROUS SULFATE
  7. FOLIC ACID [Concomitant]
     Active Substance: FOLIC ACID
  8. GUAIFENESIN [Concomitant]
     Active Substance: GUAIFENESIN
  9. KLOR-CON [Concomitant]
     Active Substance: POTASSIUM CHLORIDE
  10. MAGNESIUM CITRATE [Concomitant]
     Active Substance: MAGNESIUM CITRATE
  11. MIRALAX [Concomitant]
     Active Substance: POLYETHYLENE GLYCOL 3350
  12. NARCAN [Concomitant]
     Active Substance: NALOXONE HYDROCHLORIDE
  13. OMEGA-3 ACIDS [Concomitant]
     Active Substance: OMEGA-3 FATTY ACIDS
  14. OMEPRAZOLE [Concomitant]
     Active Substance: OMEPRAZOLE
  15. SENNA [Concomitant]
     Active Substance: SENNOSIDES
  16. SYMBICORT [Concomitant]
     Active Substance: BUDESONIDE\FORMOTEROL FUMARATE DIHYDRATE
  17. TRAMADOL [Concomitant]
     Active Substance: TRAMADOL
  18. CODEINE [Concomitant]
     Active Substance: CODEINE
  19. TAXOL [Concomitant]
     Active Substance: PACLITAXEL
  20. CARBOPLATIN [Concomitant]
     Active Substance: CARBOPLATIN

REACTIONS (11)
  - Pelvic abscess [Not Recovered/Not Resolved]
  - Malignant pleural effusion [Not Recovered/Not Resolved]
  - Heart rate increased [Recovering/Resolving]
  - Pneumonia [Recovering/Resolving]
  - Cystitis [Not Recovered/Not Resolved]
  - Blood urine present [Not Recovered/Not Resolved]
  - Oxygen saturation decreased [Not Recovered/Not Resolved]
  - Diarrhoea [Recovering/Resolving]
  - Chest pain [Recovering/Resolving]
  - Dyspnoea [Recovering/Resolving]
  - Infection [Recovering/Resolving]

NARRATIVE: CASE EVENT DATE: 20250704
